FAERS Safety Report 26121306 (Version 2)
Quarter: 2025Q4

REPORT INFORMATION
  Report Type: Report from Study
  Country: CA (occurrence: None)
  Receive Date: 20251204
  Receipt Date: 20251222
  Transmission Date: 20260118
  Serious: Yes (Death, Hospitalization, Other)
  Sender: APOTEX
  Company Number: CA-APOTEX-2025AP033319

PATIENT
  Sex: Male

DRUGS (1)
  1. POMALIDOMIDE [Suspect]
     Active Substance: POMALIDOMIDE
     Indication: Plasma cell myeloma
     Dosage: 3 MILLIGRAM, QD 1 CAPSULE DAILY FOR 21 DAYS THEN 7 DAYS OFF
     Route: 061
     Dates: start: 20250721, end: 2025

REACTIONS (3)
  - Pneumonia [Fatal]
  - Pulmonary oedema [Unknown]
  - Off label use [Unknown]

NARRATIVE: CASE EVENT DATE: 20250101
